FAERS Safety Report 9027241 (Version 1)
Quarter: 2013Q1

REPORT INFORMATION
  Report Type: Spontaneous
  Country: CH (occurrence: CH)
  Receive Date: 20130123
  Receipt Date: 20130123
  Transmission Date: 20140127
  Serious: Yes (Disabling)
  Sender: FDA-Public Use
  Company Number: CHPA2013CH001388

PATIENT
  Sex: Male

DRUGS (3)
  1. OTRIVIN [Suspect]
     Dosage: UNK, UNK
     Route: 045
  2. NEO-CITRAN [Suspect]
     Dosage: UNK, UNK
     Route: 048
  3. TOBRADEX [Concomitant]
     Dosage: UNK, UNK

REACTIONS (2)
  - Visual field defect [Not Recovered/Not Resolved]
  - Retinal disorder [Not Recovered/Not Resolved]
